FAERS Safety Report 23825088 (Version 1)
Quarter: 2024Q2

REPORT INFORMATION
  Report Type: Spontaneous
  Country: US (occurrence: None)
  Receive Date: 20240507
  Receipt Date: 20240507
  Transmission Date: 20240716
  Serious: No
  Sender: FDA-Public Use
  Company Number: 2024A104149

PATIENT
  Sex: Female

DRUGS (1)
  1. FARXIGA [Suspect]
     Active Substance: DAPAGLIFLOZIN PROPANEDIOL
     Route: 048
     Dates: start: 202309, end: 20240207

REACTIONS (6)
  - Discomfort [Unknown]
  - Glomerular filtration rate decreased [Unknown]
  - Type 2 diabetes mellitus [Unknown]
  - Renal disorder [Unknown]
  - Back pain [Unknown]
  - Product use issue [Unknown]
